FAERS Safety Report 20567290 (Version 1)
Quarter: 2022Q1

REPORT INFORMATION
  Report Type: Spontaneous
  Country: US (occurrence: US)
  Receive Date: 20220308
  Receipt Date: 20220308
  Transmission Date: 20220424
  Serious: No
  Sender: FDA-Public Use
  Company Number: US-SA-SAC20220303000616

PATIENT
  Age: 62 Year
  Sex: Female

DRUGS (1)
  1. DUPIXENT [Suspect]
     Active Substance: DUPILUMAB
     Indication: Asthma
     Dosage: THERAPY DATE: 16-DEC-2021 TO ON HOLD
     Route: 058
     Dates: start: 20211216, end: 20220228

REACTIONS (4)
  - Tachycardia [Not Recovered/Not Resolved]
  - Dizziness [Not Recovered/Not Resolved]
  - Therapy interrupted [Unknown]
  - Product use issue [Unknown]

NARRATIVE: CASE EVENT DATE: 20211216
